FAERS Safety Report 5504401-X (Version None)
Quarter: 2007Q4

REPORT INFORMATION
  Report Type: 
  Country: None (occurrence: None)
  Receive Date: 20071101
  Receipt Date: 20071022
  Transmission Date: 20080405
  Serious: No
  Sender: FDA-Public Use
  Company Number: US-ELI_LILLY_AND_COMPANY-US200710002298

PATIENT
  Sex: Female

DRUGS (2)
  1. BYETTA [Suspect]
     Dosage: UNK, UNKNOWN
     Route: 058
  2. INSULIN [Concomitant]

REACTIONS (3)
  - DECREASED APPETITE [None]
  - INCORRECT DOSE ADMINISTERED [None]
  - WEIGHT DECREASED [None]
